FAERS Safety Report 24279945 (Version 9)
Quarter: 2025Q1

REPORT INFORMATION
  Report Type: Spontaneous
  Country: US (occurrence: US)
  Receive Date: 20240904
  Receipt Date: 20250120
  Transmission Date: 20250409
  Serious: Yes (Hospitalization, Other)
  Sender: SANOFI AVENTIS
  Company Number: US-SA-2024SA252427

PATIENT
  Age: 76 Year
  Sex: Female

DRUGS (1)
  1. DUPIXENT [Suspect]
     Active Substance: DUPILUMAB
     Indication: Dermatitis atopic
     Dosage: 300 MG, QOW
     Route: 058
     Dates: start: 202403

REACTIONS (11)
  - Transient ischaemic attack [Unknown]
  - Arthritis [Unknown]
  - Eye pain [Unknown]
  - Ocular discomfort [Unknown]
  - Nerve injury [Unknown]
  - Dry skin [Unknown]
  - Neck pain [Unknown]
  - Vision blurred [Unknown]
  - Dry eye [Unknown]
  - Eye pruritus [Not Recovered/Not Resolved]
  - Eye irritation [Unknown]

NARRATIVE: CASE EVENT DATE: 20240101
